FAERS Safety Report 11057105 (Version 2)
Quarter: 2015Q2

REPORT INFORMATION
  Report Type: Spontaneous
  Country: JP (occurrence: JP)
  Receive Date: 20150422
  Receipt Date: 20150529
  Transmission Date: 20150821
  Serious: Yes (Death)
  Sender: FDA-Public Use
  Company Number: JP-PFIZER INC-2015135412

PATIENT
  Age: 69 Year
  Sex: Female
  Weight: 53.2 kg

DRUGS (4)
  1. MOXIFLOXACIN [Concomitant]
     Active Substance: MOXIFLOXACIN
     Indication: ATYPICAL MYCOBACTERIAL INFECTION
     Dosage: 400 MG, DAILY
     Route: 048
     Dates: start: 20110804, end: 20120517
  2. MYCOBUTIN [Concomitant]
     Active Substance: RIFABUTIN
     Indication: ATYPICAL MYCOBACTERIAL INFECTION
     Dosage: 300 MG, DAILY
     Route: 048
     Dates: start: 20120119, end: 20120517
  3. ZITHROMAC [Suspect]
     Active Substance: AZITHROMYCIN DIHYDRATE
     Indication: ATYPICAL MYCOBACTERIAL INFECTION
     Dosage: 500 MG, DAILY
     Route: 048
     Dates: start: 20110602, end: 20120517
  4. ETHAMBUTOL [Concomitant]
     Active Substance: ETHAMBUTOL HYDROCHLORIDE
     Indication: ATYPICAL MYCOBACTERIAL INFECTION
     Dosage: 750 MG, DAILY
     Route: 048
     Dates: start: 20081016, end: 20120517

REACTIONS (1)
  - Respiratory failure [Fatal]

NARRATIVE: CASE EVENT DATE: 20120525
